FAERS Safety Report 19306896 (Version 2)
Quarter: 2021Q2

REPORT INFORMATION
  Report Type: Report from Study
  Country: GB (occurrence: GB)
  Receive Date: 20210526
  Receipt Date: 20210623
  Transmission Date: 20210717
  Serious: Yes (Other)
  Sender: FDA-Public Use
  Company Number: NVSC2021GB109942

PATIENT
  Age: 57 Year
  Sex: Female

DRUGS (2)
  1. CYCLOSPORINE. [Suspect]
     Active Substance: CYCLOSPORINE
     Indication: PSORIASIS
     Dosage: 200 MG, BID 2 SEPARATED DOSES
     Route: 048
     Dates: start: 20201209, end: 20210212
  2. CYCLOSPORINE. [Suspect]
     Active Substance: CYCLOSPORINE
     Dosage: 100 MG, BID (2 SEPARATED DOSES)
     Route: 048

REACTIONS (3)
  - Headache [Unknown]
  - Hypertension [Unknown]
  - Nausea [Unknown]

NARRATIVE: CASE EVENT DATE: 20210118
